FAERS Safety Report 5578241-X (Version None)
Quarter: 2007Q4

REPORT INFORMATION
  Report Type: 
  Country: None (occurrence: None)
  Receive Date: 20071231
  Receipt Date: 20071221
  Transmission Date: 20080405
  Serious: Yes (Death, Hospitalization)
  Sender: FDA-Public Use
  Company Number: GB-PFIZER INC-2007029808

PATIENT
  Sex: Male

DRUGS (7)
  1. SU-011,248 [Suspect]
     Indication: METASTATIC RENAL CELL CARCINOMA
     Route: 048
  2. SU-011,248 [Suspect]
     Route: 048
  3. INSULIN [Concomitant]
  4. METFORMIN HCL [Concomitant]
  5. DEXAMETHASONE TAB [Concomitant]
     Route: 048
     Dates: start: 20070409
  6. OMEPRAZOLE [Concomitant]
     Route: 048
     Dates: start: 20070409, end: 20070702
  7. ACETAMINOPHEN [Concomitant]
     Route: 048
     Dates: start: 20070409

REACTIONS (3)
  - BRAIN OEDEMA [None]
  - DEATH [None]
  - HAEMORRHAGE INTRACRANIAL [None]
